FAERS Safety Report 6934948-0 (Version None)
Quarter: 2010Q3

REPORT INFORMATION
  Report Type: 
  Country: None (occurrence: None)
  Receive Date: 20100821
  Receipt Date: 20100812
  Transmission Date: 20110219
  Serious: Yes (Death, Other)
  Sender: FDA-Public Use
  Company Number: GXKR2010CH09058

PATIENT
  Age: 72 Year
  Sex: Male
  Weight: 57.3 kg

DRUGS (15)
  1. CIPROFLOXACIN [Interacting]
     Indication: PYREXIA
     Dosage: 500 MG, BID
     Route: 048
     Dates: start: 20081215, end: 20081217
  2. SINTROM [Interacting]
     Indication: ATRIAL FIBRILLATION
     Dosage: 1.5 MG, (11 MG IN FIRST WEEK, 7 MG IN SECOND WEEK)
     Route: 048
     Dates: start: 20081205, end: 20090107
  3. SINTROM [Interacting]
     Indication: ATRIAL FLUTTER
  4. DEPAKENE [Interacting]
     Dosage: 1000 MG, BID
     Route: 048
  5. PLAVIX [Interacting]
     Indication: MYOCARDIAL INFARCTION
     Dosage: 75 MG/DAY
     Route: 048
     Dates: start: 20081101
  6. NEXIUM [Interacting]
     Dosage: 20 MG/DAY
     Route: 041
  7. NEXIUM [Interacting]
     Dosage: 40 MG/DAY
     Route: 041
     Dates: start: 20081219
  8. IMIPENEM AND CILASTATIN [Suspect]
     Dosage: 500 MG/DAY
     Route: 041
     Dates: start: 20081218
  9. ATORVASTATIN CALCIUM [Concomitant]
     Dosage: 40 MG, QD
     Route: 048
  10. FLUPENTIXOL [Concomitant]
     Dosage: 1 MG, QD
     Route: 048
  11. GLUCOPHAGE [Concomitant]
     Dosage: 500 MG, BID
     Route: 048
  12. ARICEPT [Concomitant]
     Dosage: 10 MG, QD
     Route: 048
  13. ATACAND [Concomitant]
     Dosage: 8 MG, QD
     Route: 048
  14. CREON [Concomitant]
     Dosage: 150 MG, TID
     Route: 048
  15. DIGOXIN [Suspect]
     Dosage: 0.125 MG, QD
     Route: 048

REACTIONS (4)
  - DRUG INTERACTION [None]
  - ENTEROCOLITIS HAEMORRHAGIC [None]
  - INTERNATIONAL NORMALISED RATIO INCREASED [None]
  - PETECHIAE [None]
